FAERS Safety Report 7620052-5 (Version None)
Quarter: 2011Q3

REPORT INFORMATION
  Report Type: 
  Country: None (occurrence: None)
  Receive Date: 20110719
  Receipt Date: 20110714
  Transmission Date: 20111222
  Serious: No
  Sender: FDA-Public Use
  Company Number: US-PFIZER INC-2011160555

PATIENT
  Sex: Female

DRUGS (4)
  1. PRISTIQ [Suspect]
     Dosage: UNK
  2. PRISTIQ [Suspect]
     Dosage: 50 MG TABLET, UNSPECIFIED FREQUENCY
  3. PRISTIQ [Suspect]
     Dosage: QUARTER OF A 50MG TABLET, UNSPECIFIED FREQUENCY
     Dates: end: 20110710
  4. PRISTIQ [Suspect]
     Dosage: HALF OF A 50MG TABLET, UNSPECIFIED FREQUENCY

REACTIONS (3)
  - NAUSEA [None]
  - HYPERHIDROSIS [None]
  - HEADACHE [None]
